FAERS Safety Report 6821175-0 (Version None)
Quarter: 2010Q3

REPORT INFORMATION
  Report Type: 
  Country: None (occurrence: None)
  Receive Date: 20100707
  Receipt Date: 20080317
  Transmission Date: 20110219
  Serious: No
  Sender: FDA-Public Use
  Company Number: US-PFIZER INC-2008024431

PATIENT
  Sex: Female
  Weight: 34.09 kg

DRUGS (1)
  1. SERTRALINE [Suspect]
     Indication: TIC
     Dates: start: 20070101

REACTIONS (1)
  - TIC [None]
